FAERS Safety Report 9646757 (Version 3)
Quarter: 2015Q3

REPORT INFORMATION
  Report Type: Spontaneous
  Country: US (occurrence: US)
  Receive Date: 20131027
  Receipt Date: 20150826
  Transmission Date: 20151125
  Serious: Yes (Hospitalization, Disabling, Other)
  Sender: FDA-Public Use
  Company Number: US-009507513-1310USA009227

PATIENT
  Sex: Female
  Weight: 86.17 kg

DRUGS (7)
  1. MAGNESIUM (UNSPECIFIED) [Concomitant]
     Active Substance: MAGNESIUM
     Indication: PRODUCT USED FOR UNKNOWN INDICATION
     Dosage: 600 MG, QD
     Route: 048
     Dates: start: 2003
  2. FOSAMAX [Suspect]
     Active Substance: ALENDRONATE SODIUM
     Dosage: 10 MG, QD
     Route: 048
     Dates: start: 20030708, end: 20050707
  3. ACTONEL [Suspect]
     Active Substance: RISEDRONATE SODIUM
     Indication: OSTEOPOROSIS
     Dosage: 35 MG
     Route: 048
     Dates: start: 200606, end: 20100810
  4. FOSAMAX [Suspect]
     Active Substance: ALENDRONATE SODIUM
     Indication: OSTEOPOROSIS
     Dosage: 10 MG, QD
     Route: 048
     Dates: start: 20000521, end: 20020817
  5. ACTONEL WITH CALCIUM [Suspect]
     Active Substance: CALCIUM CARBONATE\RISEDRONATE SODIUM
     Indication: OSTEOPOROSIS
     Dosage: 35 MG/500 MG
     Route: 048
     Dates: start: 20060421, end: 20060619
  6. CALCIUM (UNSPECIFIED) (+) VITAMIN D (UNSPECIFIED) [Concomitant]
     Active Substance: CALCIUM CARBONATE\VITAMIN D
     Indication: PRODUCT USED FOR UNKNOWN INDICATION
     Dosage: 1000 MG, QD
     Route: 048
     Dates: start: 2003
  7. FOSAMAX [Suspect]
     Active Substance: ALENDRONATE SODIUM
     Dosage: 70 MG, UNK
     Route: 048
     Dates: start: 20021114, end: 20030608

REACTIONS (16)
  - Dental caries [Unknown]
  - Osteoarthritis [Unknown]
  - Bone disorder [Unknown]
  - Bladder disorder [Unknown]
  - Joint injury [Unknown]
  - Pollakiuria [Unknown]
  - Femur fracture [Unknown]
  - Stress fracture [Not Recovered/Not Resolved]
  - Meniscus injury [Recovering/Resolving]
  - Femur fracture [Not Recovered/Not Resolved]
  - Osteoporosis [Not Recovered/Not Resolved]
  - Hypertension [Not Recovered/Not Resolved]
  - Femur fracture [Unknown]
  - Hypercalciuria [Unknown]
  - Low turnover osteopathy [Not Recovered/Not Resolved]
  - Uterine disorder [Unknown]

NARRATIVE: CASE EVENT DATE: 20010618
